FAERS Safety Report 5947089-6 (Version None)
Quarter: 2008Q4

REPORT INFORMATION
  Report Type: 
  Country: None (occurrence: None)
  Receive Date: 20081110
  Receipt Date: 20081028
  Transmission Date: 20090506
  Serious: Yes (Hospitalization)
  Sender: FDA-Public Use
  Company Number: IT-ASTRAZENECA-2008SE05041

PATIENT
  Age: 24621 Day
  Sex: Female

DRUGS (3)
  1. SEROQUEL [Suspect]
     Indication: DEPRESSION
     Route: 048
     Dates: start: 20080921, end: 20081022
  2. OROTRE [Concomitant]
     Route: 048
  3. CLODEOSTEN [Concomitant]
     Route: 030

REACTIONS (1)
  - ISCHAEMIC STROKE [None]
